FAERS Safety Report 7247439-7 (Version None)
Quarter: 2011Q1

REPORT INFORMATION
  Report Type: 
  Country: None (occurrence: None)
  Receive Date: 20110127
  Receipt Date: 20110120
  Transmission Date: 20110831
  Serious: Yes (Other)
  Sender: FDA-Public Use
  Company Number: PHHY2010US22899

PATIENT
  Sex: Female

DRUGS (8)
  1. ANTIHYPERTENSIVE DRUGS [Concomitant]
     Dosage: UNK
  2. DEPO-PROVERA [Suspect]
     Dosage: UNK
  3. VIVELLE-DOT [Suspect]
     Dosage: 0.1 MG
     Route: 062
  4. HORMONES NOS [Suspect]
     Dosage: UNK
     Route: 048
  5. VALIUM [Concomitant]
     Dosage: UNK
  6. LEXAPRO [Concomitant]
     Dosage: 20 MG
  7. XANAX [Concomitant]
  8. LORTAB [Concomitant]

REACTIONS (19)
  - BREAST SWELLING [None]
  - WITHDRAWAL SYNDROME [None]
  - FEELING ABNORMAL [None]
  - WEIGHT INCREASED [None]
  - INSOMNIA [None]
  - PAIN [None]
  - INFLUENZA [None]
  - MOOD SWINGS [None]
  - OSTEOARTHRITIS [None]
  - DEPRESSION [None]
  - FEELING HOT [None]
  - DRUG ADMINISTRATION ERROR [None]
  - FIBROMYALGIA [None]
  - BREAST INDURATION [None]
  - HOT FLUSH [None]
  - BREAST TENDERNESS [None]
  - CHRONIC OBSTRUCTIVE PULMONARY DISEASE [None]
  - HYPERHIDROSIS [None]
  - DRUG INEFFECTIVE [None]
